FAERS Safety Report 5080786-6 (Version None)
Quarter: 2006Q3

REPORT INFORMATION
  Report Type: 
  Country: None (occurrence: None)
  Receive Date: 20060809
  Receipt Date: 20060801
  Transmission Date: 20061208
  Serious: Yes (Hospitalization)
  Sender: FDA-Public Use
  Company Number: GXKR2006GB04419

PATIENT
  Age: 73 Year

DRUGS (6)
  1. ASPIRIN [Suspect]
     Indication: CEREBROVASCULAR ACCIDENT
     Dosage: 75 MG, QD, ORAL
     Route: 048
     Dates: end: 20060616
  2. DIPYRIDAMOLE [Suspect]
     Indication: CEREBROVASCULAR ACCIDENT
     Dosage: 100 MG, TID, ORAL
     Route: 048
     Dates: end: 20060616
  3. GTN (GLYCERYL TRINITRATE) [Concomitant]
  4. LISINOPRIL [Concomitant]
  5. PRAVASTATIN [Concomitant]
  6. RANITIDINE [Concomitant]

REACTIONS (4)
  - DUODENITIS [None]
  - HIATUS HERNIA [None]
  - OESOPHAGEAL ULCER [None]
  - VOMITING [None]
